FAERS Safety Report 5850050-3 (Version None)
Quarter: 2008Q3

REPORT INFORMATION
  Report Type: 
  Country: None (occurrence: None)
  Receive Date: 20080731
  Receipt Date: 20080407
  Transmission Date: 20090109
  Serious: No
  Sender: FDA-Public Use
  Company Number: US200804001887

PATIENT
  Age: 64 Year
  Sex: Female

DRUGS (2)
  1. BYETTA [Suspect]
     Indication: DIABETES MELLITUS
     Dosage: 10 UG 2/D SUBCUTANEOUS
     Route: 058
  2. NOVOLOG [Concomitant]

REACTIONS (2)
  - BLOOD GLUCOSE INCREASED [None]
  - WEIGHT DECREASED [None]
